FAERS Safety Report 20682872 (Version 1)
Quarter: 2022Q2

REPORT INFORMATION
  Report Type: Spontaneous
  Country: US (occurrence: US)
  Receive Date: 20220407
  Receipt Date: 20220407
  Transmission Date: 20220721
  Serious: Yes (Hospitalization)
  Sender: FDA-Public Use
  Company Number: US-BRISTOL-MYERS SQUIBB COMPANY-2022-010909

PATIENT
  Weight: 65.77 kg

DRUGS (1)
  1. REVLIMID [Suspect]
     Active Substance: LENALIDOMIDE
     Indication: Plasma cell myeloma
     Dosage: DOSE : UNAVAILABLE;     FREQ : UNAVAILABLE
     Dates: start: 20220316, end: 202203

REACTIONS (9)
  - Hypersensitivity [Unknown]
  - Paraesthesia [Unknown]
  - Tongue disorder [Unknown]
  - Malaise [Unknown]
  - Renal disorder [Unknown]
  - Pyrexia [Unknown]
  - Tremor [Unknown]
  - Teeth brittle [Unknown]
  - Rash [Unknown]
